FAERS Safety Report 25939540 (Version 1)
Quarter: 2025Q4

REPORT INFORMATION
  Report Type: Other
  Country: CN (occurrence: CN)
  Receive Date: 20251020
  Receipt Date: 20251020
  Transmission Date: 20260117
  Serious: Yes (Hospitalization)
  Sender: Evive Biotechnology
  Company Number: CN-EVIVE BIOTECHNOLOGY IRELAND LIMITED-EVI-CN-2025-000148

PATIENT
  Age: 58 Year
  Sex: Female
  Weight: 60 kg

DRUGS (1)
  1. RYZNEUTA [Suspect]
     Active Substance: EFBEMALENOGRASTIM ALFA-VUXW
     Indication: Neutropenia
     Dosage: 20 MILLIGRAM, QD
     Route: 058
     Dates: start: 20250925, end: 20250925

REACTIONS (3)
  - Myelosuppression [Recovering/Resolving]
  - Vomiting [Recovering/Resolving]
  - Nausea [Recovering/Resolving]

NARRATIVE: CASE EVENT DATE: 20250926
